FAERS Safety Report 4569814-1 (Version None)
Quarter: 2005Q1

REPORT INFORMATION
  Report Type: 
  Country: None (occurrence: None)
  Receive Date: 20050203
  Receipt Date: 20041104
  Transmission Date: 20050727
  Serious: Yes (Hospitalization, Other)
  Sender: FDA-Public Use
  Company Number: DE-MERCK-0411DEU00084

PATIENT
  Age: 62 Year
  Sex: Male
  Weight: 102 kg

DRUGS (7)
  1. VIOXX [Suspect]
     Indication: OSTEOARTHRITIS
     Route: 048
     Dates: start: 20020801
  2. VIOXX [Suspect]
     Route: 048
     Dates: end: 20041001
  3. VIOXX [Suspect]
     Indication: KNEE ARTHROPLASTY
     Route: 048
     Dates: start: 20020801
  4. VIOXX [Suspect]
     Route: 048
     Dates: end: 20041001
  5. CANDESARTAN CILEXETIL AND HYDROCHLOROTHIAZIDE [Concomitant]
     Indication: HYPERTENSION
     Route: 065
     Dates: start: 20010101, end: 20040301
  6. CANDESARTAN CILEXETIL AND HYDROCHLOROTHIAZIDE [Concomitant]
     Indication: CARDIAC FAILURE CONGESTIVE
     Route: 065
     Dates: start: 20010101, end: 20040301
  7. BISOPROLOL [Concomitant]
     Route: 065
     Dates: start: 20010101

REACTIONS (7)
  - AORTIC VALVE INCOMPETENCE [None]
  - ASTHENIA [None]
  - CARDIAC FAILURE [None]
  - DIZZINESS [None]
  - PULMONARY EMBOLISM [None]
  - RENAL CELL CARCINOMA STAGE UNSPECIFIED [None]
  - TACHYCARDIA [None]
